FAERS Safety Report 4820950-1 (Version None)
Quarter: 2005Q4

REPORT INFORMATION
  Report Type: 
  Country: None (occurrence: None)
  Receive Date: 20051104
  Receipt Date: 20050830
  Transmission Date: 20060501
  Serious: Yes (Disabling)
  Sender: FDA-Public Use
  Company Number: NL-ROCHE-416112

PATIENT
  Sex: Female

DRUGS (2)
  1. PEGASYS [Suspect]
     Route: 058
     Dates: start: 20050511, end: 20050824
  2. COPEGUS [Suspect]
     Route: 048
     Dates: start: 20050515, end: 20050824

REACTIONS (6)
  - FALL [None]
  - FATIGUE [None]
  - GUILLAIN-BARRE SYNDROME [None]
  - SENSATION OF FOREIGN BODY [None]
  - SPEECH DISORDER [None]
  - TONGUE DISORDER [None]
